FAERS Safety Report 21200397 (Version 1)
Quarter: 2022Q3

REPORT INFORMATION
  Report Type: Spontaneous
  Country: CN (occurrence: CN)
  Receive Date: 20220811
  Receipt Date: 20220811
  Transmission Date: 20221027
  Serious: Yes (Other)
  Sender: FDA-Public Use
  Company Number: CN-PFIZER INC-PV202200039314

PATIENT
  Age: 88 Year
  Sex: Female

DRUGS (2)
  1. CELECOXIB [Suspect]
     Active Substance: CELECOXIB
     Indication: Antiinflammatory therapy
     Dosage: 0.200 G, 2X/DAY
     Route: 048
     Dates: start: 20220724, end: 20220724
  2. CELECOXIB [Suspect]
     Active Substance: CELECOXIB
     Indication: Analgesic therapy

REACTIONS (3)
  - Dizziness [Recovering/Resolving]
  - Vertigo [Recovering/Resolving]
  - Blood pressure increased [Unknown]

NARRATIVE: CASE EVENT DATE: 20220724
